FAERS Safety Report 20673190 (Version 1)
Quarter: 2022Q2

REPORT INFORMATION
  Report Type: Spontaneous
  Country: US (occurrence: None)
  Receive Date: 20220403
  Receipt Date: 20220403
  Transmission Date: 20220721
  Serious: No
  Sender: FDA-Public Use
  Company Number: None

PATIENT
  Age: 82 Year
  Sex: Male

DRUGS (1)
  1. DOFETILIDE [Suspect]
     Active Substance: DOFETILIDE
     Indication: Atrial fibrillation
     Dates: start: 20220104, end: 20220105

REACTIONS (3)
  - Electrocardiogram QT prolonged [None]
  - Ventricular extrasystoles [None]
  - Supraventricular tachycardia [None]

NARRATIVE: CASE EVENT DATE: 20220105
